FAERS Safety Report 9385186 (Version 1)
Quarter: 2013Q2

REPORT INFORMATION
  Report Type: Spontaneous
  Country: US (occurrence: None)
  Receive Date: 20130628
  Receipt Date: 20130628
  Transmission Date: 20140414
  Serious: Yes (Other)
  Sender: FDA-Public Use
  Company Number: SYM-2013-05076

PATIENT
  Age: 64 Year
  Sex: Male
  Weight: 73.03 kg

DRUGS (11)
  1. ELIDEL [Suspect]
     Indication: PSORIASIS
     Dosage: DAILY FOR TWO WEEKS, TOPICAL
     Route: 061
  2. PROTOPIC [Suspect]
     Dosage: DAILY FOR TWO WEEKS, TOPICAL
     Route: 061
  3. COREG [Concomitant]
  4. LISINOPRIL [Concomitant]
  5. BUPROPION [Concomitant]
  6. GEMFIBROZIL [Concomitant]
  7. PRAVASTATIN [Concomitant]
  8. AVODART [Concomitant]
  9. GABAPENTIN [Concomitant]
  10. GENERIC FLOMAX [Concomitant]
  11. GLYBURIDE [Concomitant]

REACTIONS (1)
  - Squamous cell carcinoma [None]
